FAERS Safety Report 8912949 (Version 1)
Quarter: 2012Q4

REPORT INFORMATION
  Report Type: 
  Country: FR (occurrence: FR)
  Receive Date: 20121116
  Receipt Date: 20121116
  Transmission Date: 20130627
  Serious: Yes (Hospitalization)
  Sender: FDA-Public Use
  Company Number: FR-JNJFOC-20121105489

PATIENT
  Age: 60 Year
  Sex: Male
  Weight: 107.94 kg

DRUGS (5)
  1. XARELTO [Suspect]
     Indication: PRODUCT USED FOR UNKNOWN INDICATION
     Route: 048
     Dates: start: 201210
  2. DIFFU K [Concomitant]
     Route: 065
  3. LASILIX [Concomitant]
     Route: 065
  4. CORDARONE [Concomitant]
     Route: 065
  5. CARDENSIEL [Concomitant]
     Route: 065

REACTIONS (1)
  - Oedema peripheral [Unknown]
